FAERS Safety Report 17639124 (Version 5)
Quarter: 2020Q3

REPORT INFORMATION
  Report Type: Report from Study
  Country: None (occurrence: JP)
  Receive Date: 20200407
  Receipt Date: 20200915
  Transmission Date: 20201102
  Serious: Yes (Life-Threatening, Hospitalization, Disabling)
  Sender: FDA-Public Use
  Company Number: JP-ABBVIE-20P-087-3354059-00

PATIENT
  Age: 69 Year
  Sex: Male
  Weight: 97 kg

DRUGS (9)
  1. KINEDAK [Concomitant]
     Active Substance: EPALRESTAT
     Indication: BULBOSPINAL MUSCULAR ATROPHY CONGENITAL
     Dosage: 150 MILLIGRAM
     Route: 065
  2. MOHRUS [Concomitant]
     Active Substance: KETOPROFEN
     Indication: BULBOSPINAL MUSCULAR ATROPHY CONGENITAL
     Dosage: 20 MILLIGRAM
     Route: 065
  3. SUMILU [Concomitant]
     Active Substance: FELBINAC
     Indication: BULBOSPINAL MUSCULAR ATROPHY CONGENITAL
     Dosage: 40 GRAM
     Route: 065
  4. RINDERON VG [Concomitant]
     Active Substance: BETAMETHASONE VALERATE\GENTAMICIN SULFATE
     Indication: PRODUCT USED FOR UNKNOWN INDICATION
     Dosage: 10 GRAM
     Route: 065
     Dates: start: 20190328
  5. AMITIZA [Concomitant]
     Active Substance: LUBIPROSTONE
     Indication: BULBOSPINAL MUSCULAR ATROPHY CONGENITAL
     Dosage: 48 MICROGRAM
     Route: 065
     Dates: start: 20180905
  6. LEUPLIN [Suspect]
     Active Substance: LEUPROLIDE ACETATE
     Indication: BULBOSPINAL MUSCULAR ATROPHY CONGENITAL
     Dosage: 11.25 MILLIGRAM, Q3MONTHS
     Route: 058
     Dates: start: 20171101
  7. TRANCOLON [Concomitant]
     Active Substance: MEPENZOLATE BROMIDE
     Indication: BULBOSPINAL MUSCULAR ATROPHY CONGENITAL
     Dosage: 22.5 MILLIGRAM
     Route: 065
  8. LYRICA [Concomitant]
     Active Substance: PREGABALIN
     Indication: BULBOSPINAL MUSCULAR ATROPHY CONGENITAL
     Dosage: 50 MILLIGRAM
     Route: 065
  9. VITAMEDIN [Concomitant]
     Active Substance: CYANOCOBALAMIN\PYRIDOXINE HYDROCHLORIDE\THIAMINE
     Indication: BULBOSPINAL MUSCULAR ATROPHY CONGENITAL
     Dosage: 75 MILLIGRAM
     Route: 065
     Dates: start: 20180502, end: 20200201

REACTIONS (2)
  - Infectious pleural effusion [Recovered/Resolved with Sequelae]
  - Pneumonia aspiration [Recovered/Resolved with Sequelae]

NARRATIVE: CASE EVENT DATE: 20200201
